FAERS Safety Report 6154396-3 (Version None)
Quarter: 2009Q2

REPORT INFORMATION
  Report Type: 
  Country: None (occurrence: None)
  Receive Date: 20090414
  Receipt Date: 20090403
  Transmission Date: 20091009
  Serious: Yes (Hospitalization, Other)
  Sender: FDA-Public Use
  Company Number: SE-ELI_LILLY_AND_COMPANY-SE200902002355

PATIENT
  Sex: Female

DRUGS (1)
  1. CYMBALTA [Suspect]
     Indication: MAJOR DEPRESSION
     Dosage: 30 MG, UNKNOWN
     Route: 048
     Dates: start: 20081113, end: 20081121

REACTIONS (3)
  - BLADDER INJURY [None]
  - HALLUCINATION, AUDITORY [None]
  - URINARY RETENTION [None]
